FAERS Safety Report 20460842 (Version 5)
Quarter: 2022Q2

REPORT INFORMATION
  Report Type: Report from Study
  Country: FR (occurrence: FR)
  Receive Date: 20220211
  Receipt Date: 20220617
  Transmission Date: 20220721
  Serious: Yes (Hospitalization, Other)
  Sender: FDA-Public Use
  Company Number: FR-GILEAD-2022-0569338

PATIENT
  Sex: Female
  Weight: 93 kg

DRUGS (3)
  1. SACITUZUMAB GOVITECAN [Suspect]
     Active Substance: SACITUZUMAB GOVITECAN
     Indication: Triple negative breast cancer
     Dosage: 10 MG/KG, Q3W ON C1D1 AND C1D8
     Route: 042
     Dates: start: 20220124, end: 20220131
  2. SACITUZUMAB GOVITECAN [Suspect]
     Active Substance: SACITUZUMAB GOVITECAN
     Dosage: 7.5 MG/KG, C2 D1-D8
     Route: 042
     Dates: start: 20220228, end: 20220307
  3. METHOTREXATE [Concomitant]
     Active Substance: METHOTREXATE
     Indication: Disease progression
     Route: 037

REACTIONS (3)
  - Colitis [Recovered/Resolved]
  - Neutropenia [Recovered/Resolved]
  - Diarrhoea [Recovered/Resolved]

NARRATIVE: CASE EVENT DATE: 20220204
